FAERS Safety Report 4956890-7 (Version None)
Quarter: 2006Q1

REPORT INFORMATION
  Report Type: 
  Country: None (occurrence: None)
  Receive Date: 20060323
  Receipt Date: 20060313
  Transmission Date: 20060701
  Serious: Yes (Other)
  Sender: FDA-Public Use
  Company Number: 2006008591

PATIENT
  Age: 81 Year
  Sex: Male

DRUGS (5)
  1. NORVASC [Suspect]
     Indication: HYPERTENSION
     Dosage: 5 MG (5 MG, DAILY INTERVAL:  EVERY DAY)
     Dates: start: 20050101
  2. AMIODARONE HYDROCHLORIDE [Suspect]
     Indication: ATRIAL FIBRILLATION
     Dates: end: 20051004
  3. DARVOCET [Concomitant]
  4. DIOVAN [Concomitant]
  5. TRICOR [Concomitant]

REACTIONS (14)
  - BLOOD PRESSURE DECREASED [None]
  - FLATULENCE [None]
  - FREQUENT BOWEL MOVEMENTS [None]
  - HERPES ZOSTER [None]
  - INSOMNIA [None]
  - LUNG INFILTRATION [None]
  - NASOPHARYNGITIS [None]
  - NERVE INJURY [None]
  - NEURALGIA [None]
  - PULMONARY FIBROSIS [None]
  - RESPIRATORY DISORDER [None]
  - SENSORY LOSS [None]
  - SINUSITIS [None]
  - WEIGHT DECREASED [None]
